FAERS Safety Report 9587372 (Version 1)
Quarter: 2013Q4

REPORT INFORMATION
  Report Type: Spontaneous
  Country: US (occurrence: None)
  Receive Date: 20131003
  Receipt Date: 20131003
  Transmission Date: 20140711
  Serious: No
  Sender: FDA-Public Use
  Company Number: None

PATIENT
  Age: 28 Year
  Sex: Male

DRUGS (1)
  1. SUBOXONE FILM [Suspect]

REACTIONS (3)
  - Stomatitis [None]
  - Aphthous stomatitis [None]
  - Wrong technique in drug usage process [None]
